FAERS Safety Report 17892136 (Version 1)
Quarter: 2020Q2

REPORT INFORMATION
  Report Type: Spontaneous
  Country: FR (occurrence: FR)
  Receive Date: 20200612
  Receipt Date: 20200612
  Transmission Date: 20200714
  Serious: No
  Sender: FDA-Public Use
  Company Number: FR-TOLMAR, INC.-20FR020559

PATIENT
  Age: 62 Year
  Sex: Female

DRUGS (1)
  1. ELIGARD [Suspect]
     Active Substance: LEUPROLIDE ACETATE
     Indication: PRODUCT USED FOR UNKNOWN INDICATION
     Dosage: UNK
     Route: 065

REACTIONS (3)
  - Intercepted product preparation error [None]
  - Occupational exposure to product [Unknown]
  - Syringe issue [None]

NARRATIVE: CASE EVENT DATE: 20200215
